FAERS Safety Report 5516951-0 (Version None)
Quarter: 2007Q4

REPORT INFORMATION
  Report Type: 
  Country: None (occurrence: None)
  Receive Date: 20071114
  Receipt Date: 20070614
  Transmission Date: 20080405
  Serious: No
  Sender: FDA-Public Use
  Company Number: A0655818A

PATIENT
  Age: 50 Year
  Sex: Female

DRUGS (1)
  1. COMMIT [Suspect]
     Dates: start: 20070608, end: 20070611

REACTIONS (7)
  - COUGH [None]
  - NAUSEA [None]
  - NONSPECIFIC REACTION [None]
  - PHARYNGOLARYNGEAL DISCOMFORT [None]
  - PRODUCTIVE COUGH [None]
  - THROAT IRRITATION [None]
  - VOMITING [None]
